FAERS Safety Report 12776416 (Version 2)
Quarter: 2016Q4

REPORT INFORMATION
  Report Type: Report from Study
  Country: JP (occurrence: JP)
  Receive Date: 20160923
  Receipt Date: 20161025
  Transmission Date: 20170207
  Serious: Yes (Death)
  Sender: FDA-Public Use
  Company Number: JP-PFIZER INC-2016442626

PATIENT
  Age: 77 Year
  Sex: Female
  Weight: 69 kg

DRUGS (5)
  1. ORENCIA [Suspect]
     Active Substance: ABATACEPT
     Indication: RHEUMATOID ARTHRITIS
     Dosage: UNK
     Dates: start: 20141118, end: 20160105
  2. AZULFIDINE EN-TABS [Suspect]
     Active Substance: SULFASALAZINE
     Indication: RHEUMATOID ARTHRITIS
     Dosage: 1000 MG, DAILY
     Route: 048
     Dates: start: 20111102, end: 20160202
  3. RHEUMATREX [Suspect]
     Active Substance: METHOTREXATE SODIUM
     Indication: RHEUMATOID ARTHRITIS
     Dosage: 10 MG, WEEKLY
     Route: 048
     Dates: start: 20140519, end: 20140826
  4. RHEUMATREX [Suspect]
     Active Substance: METHOTREXATE SODIUM
     Dosage: 12 MG, WEEKLY
     Route: 048
     Dates: start: 20140826
  5. NO SUBJECT DRUG [Suspect]
     Active Substance: UNSPECIFIED INGREDIENT
     Dosage: NO DOSE GIVEN

REACTIONS (1)
  - Pneumonia [Fatal]

NARRATIVE: CASE EVENT DATE: 20160109
